FAERS Safety Report 5196411-X (Version None)
Quarter: 2006Q4

REPORT INFORMATION
  Report Type: 
  Country: None (occurrence: None)
  Receive Date: 20061222
  Receipt Date: 20061213
  Transmission Date: 20070319
  Serious: Yes (Hospitalization)
  Sender: FDA-Public Use
  Company Number: 2006SP008504

PATIENT
  Age: 74 Year
  Sex: Male

DRUGS (6)
  1. TEMODAL [Suspect]
     Indication: GLIOBLASTOMA
     Dosage: 140 MG QD PO
     Route: 048
     Dates: start: 20061130
  2. CARMEN [Concomitant]
  3. PANTOZOL [Concomitant]
  4. CONTRIM FORTE [Concomitant]
  5. DIFLUCAN [Concomitant]
  6. MACROGOL [Concomitant]

REACTIONS (1)
  - DEEP VEIN THROMBOSIS [None]
